FAERS Safety Report 6093740-2 (Version None)
Quarter: 2009Q1

REPORT INFORMATION
  Report Type: 
  Country: None (occurrence: None)
  Receive Date: 20090223
  Receipt Date: 20090223
  Transmission Date: 20090719
  Serious: Yes (Other)
  Sender: FDA-Public Use
  Company Number: None

PATIENT
  Age: 49 Year
  Sex: Female
  Weight: 57.1532 kg

DRUGS (2)
  1. LIDOCAINE [Suspect]
     Indication: THERAPEUTIC PROCEDURE
     Dosage: ONCE, CUTANEOUS
     Route: 003
     Dates: start: 20071126, end: 20071126
  2. LIDOCAINE [Suspect]
     Indication: THERAPEUTIC PROCEDURE
     Dosage: ONCE, IV
     Route: 042
     Dates: start: 20060620, end: 20060620

REACTIONS (8)
  - BLISTER [None]
  - BODY TEMPERATURE INCREASED [None]
  - CHEST DISCOMFORT [None]
  - CYANOSIS [None]
  - DOCUMENTED HYPERSENSITIVITY TO ADMINISTERED DRUG [None]
  - FATIGUE [None]
  - RASH [None]
  - SKIN EXFOLIATION [None]
